FAERS Safety Report 24737646 (Version 2)
Quarter: 2024Q4

REPORT INFORMATION
  Report Type: Spontaneous
  Country: US (occurrence: US)
  Receive Date: 20241216
  Receipt Date: 20241223
  Transmission Date: 20250114
  Serious: Yes (Other)
  Sender: SANOFI AVENTIS
  Company Number: US-DialogSolutions-SAAVPROD-PI710975-C1

PATIENT
  Age: 85 Year
  Sex: Male

DRUGS (1)
  1. DOCETAXEL [Suspect]
     Active Substance: DOCETAXEL
     Indication: Prostate cancer metastatic
     Dosage: 3 DF (INFUSION)
     Route: 042

REACTIONS (9)
  - Retinal artery occlusion [Recovering/Resolving]
  - Macular oedema [Recovering/Resolving]
  - Blindness [Recovering/Resolving]
  - Pupillary reflex impaired [Recovering/Resolving]
  - Papilloedema [Recovering/Resolving]
  - Optic disc haemorrhage [Recovering/Resolving]
  - Retinal oedema [Recovering/Resolving]
  - Retinal thickening [Recovering/Resolving]
  - Optic ischaemic neuropathy [Recovering/Resolving]
